FAERS Safety Report 16211256 (Version 2)
Quarter: 2019Q2

REPORT INFORMATION
  Report Type: Spontaneous
  Country: FR (occurrence: FR)
  Receive Date: 20190418
  Receipt Date: 20190426
  Transmission Date: 20190711
  Serious: Yes (Other)
  Sender: FDA-Public Use
  Company Number: FR-ACCORD-122165

PATIENT
  Age: 53 Year
  Sex: Female

DRUGS (3)
  1. IRINOTECAN [Suspect]
     Active Substance: IRINOTECAN
     Indication: COLON CANCER METASTATIC
     Dosage: 35 CYCLES
     Dates: start: 2011, end: 2017
  2. BEVACIZUMAB. [Concomitant]
     Active Substance: BEVACIZUMAB
     Indication: COLON CANCER METASTATIC
     Dosage: 35 CYCLES
     Dates: start: 2011, end: 2017
  3. FLUOROURACIL. [Concomitant]
     Active Substance: FLUOROURACIL
     Indication: COLON CANCER METASTATIC
     Dosage: 35 CYCLES
     Dates: start: 2011, end: 2017

REACTIONS (2)
  - Photophobia [Recovered/Resolved]
  - Retinopathy [Recovered/Resolved]

NARRATIVE: CASE EVENT DATE: 2017
